FAERS Safety Report 7822091-8 (Version None)
Quarter: 2011Q4

REPORT INFORMATION
  Report Type: 
  Country: None (occurrence: None)
  Receive Date: 20111018
  Receipt Date: 20111013
  Transmission Date: 20120403
  Serious: Yes (Life-Threatening, Hospitalization, Other)
  Sender: FDA-Public Use
  Company Number: PHHY2011FR90748

PATIENT
  Sex: Female

DRUGS (10)
  1. NITROGLYCERIN [Concomitant]
     Dosage: UNK UKN, UNK
  2. ATORVASTATIN CALCIUM [Suspect]
     Dosage: UNK UKN, UNK
     Dates: start: 20110901, end: 20110927
  3. ACETAMINOPHEN [Concomitant]
     Dosage: UNK UKN, UNK
  4. PLAVIX [Suspect]
     Indication: THROMBOSIS PROPHYLAXIS
     Dosage: UNK UKN, UNK
     Dates: start: 20110908
  5. RABEPRAZOLE SODIUM [Suspect]
     Dosage: UNK UKN, UNK
     Dates: start: 20110901, end: 20110927
  6. ASPIRIN [Concomitant]
     Dosage: UNK UKN, UNK
  7. ZANTAC [Concomitant]
     Dosage: UNK UKN, UNK
  8. VALSARTAN [Suspect]
     Dosage: UNK UKN, UNK
     Route: 048
     Dates: start: 20110901, end: 20110927
  9. BISOPROLOL FUMARATE [Concomitant]
     Dosage: UNK UKN, UNK
  10. NITRODERM [Concomitant]
     Dosage: UNK UKN, UNK
     Dates: start: 20110901, end: 20110925

REACTIONS (19)
  - HYPOTENSION [None]
  - FOOD ALLERGY [None]
  - NAUSEA [None]
  - ERYTHEMA [None]
  - HYPERSENSITIVITY [None]
  - DYSPHAGIA [None]
  - PRURITUS [None]
  - DYSPNOEA [None]
  - CHEST DISCOMFORT [None]
  - NEUTROPHIL COUNT DECREASED [None]
  - SWOLLEN TONGUE [None]
  - URTICARIA [None]
  - RASH [None]
  - FACE OEDEMA [None]
  - EYELID OEDEMA [None]
  - CHEST PAIN [None]
  - ACUTE CORONARY SYNDROME [None]
  - TONGUE OEDEMA [None]
  - DIARRHOEA [None]
